FAERS Safety Report 7680346-4 (Version None)
Quarter: 2011Q3

REPORT INFORMATION
  Report Type: 
  Country: None (occurrence: None)
  Receive Date: 20110812
  Receipt Date: 20110804
  Transmission Date: 20111222
  Serious: Yes (Hospitalization)
  Sender: FDA-Public Use
  Company Number: JP-GLAXOSMITHKLINE-B0720931A

PATIENT
  Sex: Male
  Weight: 67 kg

DRUGS (6)
  1. MONTELUKAST SODIUM [Concomitant]
     Dosage: 10MG PER DAY
     Route: 048
  2. TIZANIDINE HYDROCHLORIDE [Concomitant]
     Dosage: 3MG PER DAY
     Route: 048
     Dates: start: 20091127
  3. SERETIDE (50MCG/250MCG) [Suspect]
     Indication: EMPHYSEMA
     Dosage: 500MCG PER DAY
     Route: 055
     Dates: start: 20091127
  4. THEO-DUR [Concomitant]
     Indication: EMPHYSEMA
     Dosage: 400MG PER DAY
     Route: 048
  5. ZOLPIDEM [Concomitant]
     Dosage: 10MG PER DAY
     Route: 048
  6. SPIRIVA [Concomitant]
     Indication: EMPHYSEMA
     Dosage: 18MCG PER DAY
     Route: 055

REACTIONS (2)
  - PNEUMONIA BACTERIAL [None]
  - ENTERITIS INFECTIOUS [None]
